FAERS Safety Report 13271190 (Version 1)
Quarter: 2017Q1

REPORT INFORMATION
  Report Type: Spontaneous
  Country: JP (occurrence: JP)
  Receive Date: 20170226
  Receipt Date: 20170226
  Transmission Date: 20170428
  Serious: Yes (Death, Hospitalization)
  Sender: FDA-Public Use
  Company Number: PHHY2017JP029459

PATIENT
  Age: 82 Year
  Sex: Male

DRUGS (2)
  1. EXELON PATCH [Suspect]
     Active Substance: RIVASTIGMINE
     Indication: DEMENTIA ALZHEIMER^S TYPE
     Dosage: 4.6 MG, QD (RIVASTIGMINE BASE 9 MG, PATCH 5 CM2)
     Route: 062
     Dates: start: 20170108
  2. RIVASTACH [Suspect]
     Active Substance: RIVASTIGMINE
     Indication: DEMENTIA ALZHEIMER^S TYPE
     Dosage: 3.8 MG, QD APPLIED 2 PATCHES OF 1.9 MG(RIVASTIGMINE BASE 4.5 MG, PATCH 2.5 CM2)
     Route: 062
     Dates: end: 20170107

REACTIONS (4)
  - Marasmus [Fatal]
  - Decreased appetite [Unknown]
  - Feeding disorder [Unknown]
  - Wrong technique in product usage process [Unknown]

NARRATIVE: CASE EVENT DATE: 20170104
